FAERS Safety Report 4484929-4 (Version None)
Quarter: 2004Q3

REPORT INFORMATION
  Report Type: 
  Country: None (occurrence: None)
  Receive Date: 20040921
  Receipt Date: 20030815
  Transmission Date: 20050211
  Serious: Yes (Hospitalization, Other)
  Sender: FDA-Public Use
  Company Number: 163-20785-03080518

PATIENT
  Age: 80 Year
  Sex: Female

DRUGS (6)
  1. THALOMID [Suspect]
     Indication: MULTIPLE MYELOMA
     Dosage: 200 MG, Q DAYS 1-28, ORAL
     Route: 048
     Dates: start: 20030616, end: 20030725
  2. THALOMID [Suspect]
     Indication: MULTIPLE MYELOMA
     Dosage: 200 MG, Q DAYS 1-28, ORAL
     Route: 048
     Dates: start: 20030811
  3. PREDNISONE [Concomitant]
  4. CYTOXAN [Concomitant]
  5. SEPTRA DS (BASTRIM) [Concomitant]
  6. PREVACID [Concomitant]

REACTIONS (1)
  - DEEP VEIN THROMBOSIS [None]
